FAERS Safety Report 7789467-9 (Version None)
Quarter: 2011Q3

REPORT INFORMATION
  Report Type: 
  Country: None (occurrence: None)
  Receive Date: 20110930
  Receipt Date: 20110923
  Transmission Date: 20111222
  Serious: Yes (Hospitalization, Other)
  Sender: FDA-Public Use
  Company Number: US-ACTELION-A-US2011-50003

PATIENT

DRUGS (1)
  1. TRACLEER [Suspect]
     Indication: PULMONARY ARTERIAL HYPERTENSION
     Dosage: 62.5 MG, BID
     Route: 048
     Dates: start: 20090821

REACTIONS (6)
  - COLONOSCOPY [None]
  - ANAEMIA [None]
  - POLYP [None]
  - FATIGUE [None]
  - COLON CANCER [None]
  - BLOOD PRODUCT TRANSFUSION [None]
